FAERS Safety Report 24197870 (Version 1)
Quarter: 2024Q3

REPORT INFORMATION
  Report Type: Spontaneous
  Country: DK (occurrence: DK)
  Receive Date: 20240811
  Receipt Date: 20240811
  Transmission Date: 20241016
  Serious: Yes (Life-Threatening)
  Sender: NOVARTIS
  Company Number: None

PATIENT
  Age: 14 Day
  Sex: Male
  Weight: 3.4 kg

DRUGS (4)
  1. ZOLGENSMA [Suspect]
     Active Substance: ONASEMNOGENE ABEPARVOVEC-XIOI
     Indication: Spinal muscular atrophy
     Dosage: UNK (DOSAGE: 1.1 VG/KG WITH UNKNOWN INTERVALS)
     Route: 042
     Dates: start: 20240507, end: 20240507
  2. ZOLGENSMA [Suspect]
     Active Substance: ONASEMNOGENE ABEPARVOVEC-XIOI
     Dosage: UNK (DOSAGE: 1.1 VG/KG WITH UNKNOWN INTERVALS)
     Route: 042
     Dates: start: 20240507, end: 20240507
  3. ZOLGENSMA [Suspect]
     Active Substance: ONASEMNOGENE ABEPARVOVEC-XIOI
     Dosage: UNK (DOSAGE: 1.1 VG/KG WITH UNKNOWN INTERVALS)
     Route: 042
     Dates: start: 20240507, end: 20240507
  4. PREDNISOLONE [Concomitant]
     Active Substance: PREDNISOLONE
     Indication: Immunomodulatory therapy
     Dosage: 3.4 MG, UNKNOWN
     Route: 065
     Dates: start: 20240506

REACTIONS (3)
  - Hypertension [Recovered/Resolved]
  - Malaise [Unknown]
  - Pallor [Unknown]

NARRATIVE: CASE EVENT DATE: 20240507
